FAERS Safety Report 6887373-5 (Version None)
Quarter: 2010Q3

REPORT INFORMATION
  Report Type: 
  Country: None (occurrence: None)
  Receive Date: 20100730
  Receipt Date: 20100121
  Transmission Date: 20110219
  Serious: No
  Sender: FDA-Public Use
  Company Number: A0825036A

PATIENT
  Age: 56 Year
  Sex: Female
  Weight: 71.8 kg

DRUGS (3)
  1. SUMATRIPTAN SUCCINATE [Suspect]
     Dosage: 50MG AS REQUIRED
     Route: 048
     Dates: start: 20091101, end: 20091112
  2. ALEVE (CAPLET) [Concomitant]
     Indication: MIGRAINE
     Dosage: 2TABS UNKNOWN
     Route: 048
     Dates: start: 20091111, end: 20091114
  3. IMITREX [Concomitant]
     Indication: MIGRAINE
     Route: 065

REACTIONS (2)
  - DRUG INEFFECTIVE [None]
  - PRODUCT QUALITY ISSUE [None]
